FAERS Safety Report 5280516-9 (Version None)
Quarter: 2007Q1

REPORT INFORMATION
  Report Type: 
  Country: None (occurrence: None)
  Receive Date: 20070329
  Receipt Date: 20070323
  Transmission Date: 20070707
  Serious: Yes (Other)
  Sender: FDA-Public Use
  Company Number: US-JNJFOC-20070305706

PATIENT
  Sex: Female
  Weight: 79.38 kg

DRUGS (2)
  1. MOTRIN IB [Suspect]
     Indication: HEADACHE
     Route: 048
  2. MOTRIN IB [Suspect]
     Indication: TOOTHACHE
     Route: 048

REACTIONS (4)
  - DIARRHOEA [None]
  - DYSPEPSIA [None]
  - HYPERHIDROSIS [None]
  - LOSS OF CONSCIOUSNESS [None]
